FAERS Safety Report 4323541-4 (Version None)
Quarter: 2004Q1

REPORT INFORMATION
  Report Type: 
  Country: None (occurrence: None)
  Receive Date: 20040325
  Receipt Date: 20001117
  Transmission Date: 20041129
  Serious: Yes (Life-Threatening, Disabling)
  Sender: FDA-Public Use
  Company Number: WAES 00111669

PATIENT
  Sex: Male

DRUGS (2)
  1. PROPECIA [Suspect]
     Indication: ALOPECIA
     Route: 048
     Dates: start: 19971101
  2. PROPECIA [Suspect]
     Route: 048
     Dates: end: 20040318

REACTIONS (4)
  - ABDOMINAL PAIN [None]
  - HEPATIC PAIN [None]
  - MEDICATION ERROR [None]
  - SWELLING FACE [None]
